FAERS Safety Report 4611477-0 (Version None)
Quarter: 2005Q1

REPORT INFORMATION
  Report Type: 
  Country: None (occurrence: None)
  Receive Date: 20050317
  Receipt Date: 20010918
  Transmission Date: 20050727
  Serious: Yes (Hospitalization)
  Sender: FDA-Public Use
  Company Number: FR-ROCHE-268362

PATIENT
  Age: 15 Year
  Sex: Female
  Weight: 50 kg

DRUGS (1)
  1. ROACCUTANE [Suspect]
     Indication: DRUG USE FOR UNKNOWN INDICATION
     Route: 048
     Dates: start: 20000101, end: 20000202

REACTIONS (8)
  - ANAEMIA [None]
  - ANTINUCLEAR ANTIBODY POSITIVE [None]
  - ARTHRALGIA [None]
  - EXANTHEM [None]
  - INFLAMMATION [None]
  - PYREXIA [None]
  - SEPSIS [None]
  - TRANSAMINASES INCREASED [None]
